FAERS Safety Report 9424460 (Version 2)
Quarter: 2013Q3

REPORT INFORMATION
  Report Type: Report from Study
  Country: CA (occurrence: CA)
  Receive Date: 20130729
  Receipt Date: 20130807
  Transmission Date: 20140515
  Serious: Yes (Hospitalization)
  Sender: FDA-Public Use
  Company Number: CA-ROCHE-1238194

PATIENT
  Age: 33 Year
  Sex: Female
  Weight: 103.7 kg

DRUGS (6)
  1. AVASTIN [Suspect]
     Indication: GLIOBLASTOMA
     Route: 042
     Dates: start: 20130516, end: 20130613
  2. KEPPRA [Concomitant]
     Route: 065
  3. CLOBAZAM [Concomitant]
     Indication: CONVULSION
     Dosage: AT NIGHT
     Route: 065
  4. ESOMEPRAZOLE [Concomitant]
     Indication: PROPHYLAXIS AGAINST GASTROINTESTINAL ULCER
     Route: 065
  5. DECADRON [Concomitant]
     Route: 065
  6. VITAMIN B COMPLEX [Concomitant]

REACTIONS (4)
  - Postoperative wound infection [Unknown]
  - Heat illness [Unknown]
  - Dehydration [Unknown]
  - Disease progression [Unknown]
